FAERS Safety Report 18634368 (Version 1)
Quarter: 2020Q4

REPORT INFORMATION
  Report Type: Spontaneous
  Country: FR (occurrence: FR)
  Receive Date: 20201218
  Receipt Date: 20201218
  Transmission Date: 20210114
  Serious: Yes (Hospitalization)
  Sender: FDA-Public Use
  Company Number: FR-TEVA-2020-FR-1858800

PATIENT
  Age: 23 Year
  Sex: Female
  Weight: 59 kg

DRUGS (4)
  1. MIANSERINE (CHLORHYDRATE DE) [Concomitant]
     Active Substance: MIANSERIN HYDROCHLORIDE
     Dosage: 10MILLIGRAM
     Route: 048
     Dates: start: 202008
  2. LAMOTRIGINE. [Suspect]
     Active Substance: LAMOTRIGINE
     Indication: BORDERLINE PERSONALITY DISORDER
     Dosage: 100MILLIGRAM
     Route: 048
     Dates: start: 20200902, end: 20200923
  3. LEXOMIL 6 MG, COMPRIME QUADRISECABLE [Concomitant]
     Active Substance: BROMAZEPAM
     Dosage: FOUR-SPLIT TABLET:UNIT DOSE:3MILLIGRAM
     Route: 048
     Dates: start: 202008
  4. BRINTELLIX [Concomitant]
     Active Substance: VORTIOXETINE HYDROBROMIDE
     Dosage: 5MILLIGRAM
     Route: 048
     Dates: start: 20200909

REACTIONS (2)
  - Eosinophilia [Recovered/Resolved]
  - Myositis [Recovered/Resolved]

NARRATIVE: CASE EVENT DATE: 20200922
